FAERS Safety Report 12374634 (Version 3)
Quarter: 2016Q3

REPORT INFORMATION
  Report Type: Spontaneous
  Country: US (occurrence: US)
  Receive Date: 20160517
  Receipt Date: 20160801
  Transmission Date: 20161109
  Serious: Yes (Other)
  Sender: FDA-Public Use
  Company Number: US-BEH-2016062426

PATIENT
  Sex: Male

DRUGS (1)
  1. CYTOGAM [Suspect]
     Active Substance: HUMAN CYTOMEGALOVIRUS IMMUNE GLOBULIN
     Indication: CYTOMEGALOVIRUS INFECTION

REACTIONS (3)
  - Cytomegalovirus infection [Unknown]
  - Foetal exposure during pregnancy [Unknown]
  - Deafness unilateral [Unknown]
